FAERS Safety Report 24813012 (Version 1)
Quarter: 2025Q1

REPORT INFORMATION
  Report Type: Spontaneous
  Country: US (occurrence: US)
  Receive Date: 20250107
  Receipt Date: 20250107
  Transmission Date: 20250408
  Serious: No
  Sender: GLAXOSMITHKLINE
  Company Number: US-GSK-US2025AMR000158

PATIENT

DRUGS (2)
  1. SUMATRIPTAN SUCCINATE [Interacting]
     Active Substance: SUMATRIPTAN SUCCINATE
     Indication: Product used for unknown indication
  2. AUVELITY [Interacting]
     Active Substance: BUPROPION HYDROCHLORIDE\DEXTROMETHORPHAN HYDROBROMIDE
     Indication: Product used for unknown indication

REACTIONS (4)
  - Insomnia [Unknown]
  - Migraine [Unknown]
  - Condition aggravated [Unknown]
  - Drug interaction [Unknown]
